FAERS Safety Report 10871643 (Version 5)
Quarter: 2015Q3

REPORT INFORMATION
  Report Type: Spontaneous
  Country: US (occurrence: US)
  Receive Date: 20150226
  Receipt Date: 20150721
  Transmission Date: 20151125
  Serious: Yes (Other)
  Sender: FDA-Public Use
  Company Number: US-SA-2015SA005132

PATIENT
  Age: 70 Year
  Sex: Female

DRUGS (64)
  1. GLIBENCLAMIDE [Suspect]
     Active Substance: GLYBURIDE
     Route: 065
  2. NEXIUM [Suspect]
     Active Substance: ESOMEPRAZOLE MAGNESIUM
     Indication: GASTROOESOPHAGEAL REFLUX DISEASE
     Route: 048
     Dates: start: 2004, end: 20141205
  3. NEXIUM 24HR [Suspect]
     Active Substance: ESOMEPRAZOLE MAGNESIUM
     Indication: GASTROOESOPHAGEAL REFLUX DISEASE
     Route: 048
  4. HUMALOG [Suspect]
     Active Substance: INSULIN LISPRO
     Route: 065
  5. ZELNORM [Suspect]
     Active Substance: TEGASEROD MALEATE
     Route: 065
  6. BENADRYL [Suspect]
     Active Substance: DIPHENHYDRAMINE HYDROCHLORIDE
     Route: 065
  7. QUERCETIN [Concomitant]
     Active Substance: QUERCETIN
     Dates: start: 2009
  8. LYSINE [Concomitant]
     Active Substance: LYSINE
     Dates: start: 2002
  9. VITAMIN B COMPLEX [Concomitant]
     Active Substance: CYANOCOBALAMIN\DEXPANTHENOL\NIACINAMIDE\PYRIDOXINE HYDROCHLORIDE\RIBOFLAVIN 5^-PHOSPHATE SODIUM\THIAMINE HYDROCHLORIDE\VITAMIN B COMPLEX
     Dates: start: 2002
  10. VITAMIN K [Concomitant]
     Active Substance: PHYTONADIONE
     Dates: start: 2002
  11. ZINC [Concomitant]
     Active Substance: ZINC\ZINC CHLORIDE
     Dates: start: 2009
  12. NIFEDIPINE. [Suspect]
     Active Substance: NIFEDIPINE
     Route: 065
  13. NEXIUM [Suspect]
     Active Substance: ESOMEPRAZOLE MAGNESIUM
     Indication: HIATUS HERNIA
     Route: 048
     Dates: start: 2004, end: 20141205
  14. NEXIUM [Suspect]
     Active Substance: ESOMEPRAZOLE MAGNESIUM
     Indication: GASTROOESOPHAGEAL REFLUX DISEASE
     Route: 048
     Dates: start: 2004, end: 20141205
  15. CARNOSINE [Concomitant]
     Active Substance: CARNOSINE
     Dates: start: 2012
  16. VITAMIN C [Concomitant]
     Active Substance: ASCORBIC ACID
     Dates: start: 2002
  17. MAGNESIUM [Concomitant]
     Active Substance: MAGNESIUM
     Dates: start: 1998
  18. NOVOLIN N [Concomitant]
     Active Substance: INSULIN HUMAN
  19. INSULIN [Concomitant]
     Active Substance: INSULIN NOS
  20. NEXIUM 24HR [Suspect]
     Active Substance: ESOMEPRAZOLE MAGNESIUM
     Indication: HIATUS HERNIA
     Route: 048
  21. BIOTIN [Concomitant]
     Active Substance: BIOTIN
     Indication: DIABETES MELLITUS
     Dates: start: 2012
  22. VITAMIN B1 [Concomitant]
     Active Substance: THIAMINE HYDROCHLORIDE
     Indication: NEUROPATHY PERIPHERAL
     Dates: start: 2004
  23. PREVACID [Suspect]
     Active Substance: LANSOPRAZOLE
     Route: 065
  24. MORPHINE SULFATE. [Suspect]
     Active Substance: MORPHINE SULFATE
     Route: 065
  25. OMEPRAZOLE. [Suspect]
     Active Substance: OMEPRAZOLE
     Indication: GASTRIC DISORDER
     Route: 048
     Dates: start: 2002
  26. LISINOPRIL. [Suspect]
     Active Substance: LISINOPRIL
     Indication: BLOOD PRESSURE ABNORMAL
     Route: 048
  27. LOSARTAN. [Suspect]
     Active Substance: LOSARTAN
     Route: 065
  28. NEXIUM [Suspect]
     Active Substance: ESOMEPRAZOLE MAGNESIUM
     Indication: GASTROOESOPHAGEAL REFLUX DISEASE
     Route: 048
     Dates: start: 20141205
  29. ESTROGEN NOS [Suspect]
     Active Substance: ESTROGENS
     Route: 065
  30. CITRAFEN [Suspect]
     Active Substance: TIQUIZIUM BROMIDE
     Route: 065
  31. ACETYLCYSTEINE. [Concomitant]
     Active Substance: ACETYLCYSTEINE
     Dates: start: 2009
  32. PANTETHINE [Concomitant]
     Active Substance: PANTETHINE
     Indication: BLOOD CHOLESTEROL
     Dates: start: 2009
  33. TUMS [Concomitant]
     Active Substance: CALCIUM CARBONATE
     Indication: GASTROINTESTINAL DISORDER
     Dates: start: 2014
  34. GINGER. [Concomitant]
     Active Substance: GINGER
     Indication: ARTHRITIS
     Dates: start: 2012
  35. PERCOCET [Suspect]
     Active Substance: ACETAMINOPHEN\OXYCODONE HYDROCHLORIDE
     Route: 065
  36. CHROMIUM [Concomitant]
     Active Substance: CHROMIC CHLORIDE\CHROMIUM
  37. PERLUTEX [Concomitant]
     Dates: start: 2009
  38. VITAMIN D3 [Concomitant]
     Active Substance: CHOLECALCIFEROL
     Dates: start: 2002
  39. POTASSIUM [Concomitant]
     Active Substance: POTASSIUM
     Dates: start: 2002
  40. IBUPROFEN. [Suspect]
     Active Substance: IBUPROFEN
     Route: 065
  41. FAMOTIDINE. [Suspect]
     Active Substance: FAMOTIDINE
     Route: 065
  42. CODEINE [Suspect]
     Active Substance: CODEINE
     Route: 065
  43. NEXIUM 24HR [Suspect]
     Active Substance: ESOMEPRAZOLE MAGNESIUM
     Indication: HIATUS HERNIA
     Route: 048
     Dates: start: 20141205
  44. NEXIUM 24HR [Suspect]
     Active Substance: ESOMEPRAZOLE MAGNESIUM
     Indication: GASTROOESOPHAGEAL REFLUX DISEASE
     Route: 048
     Dates: start: 20141205
  45. VITAMIN B 1-6-12 [Suspect]
     Active Substance: CYANOCOBALAMIN\PYRIDOXINE\THIAMINE
     Indication: GENERAL PHYSICAL HEALTH DETERIORATION
     Route: 065
     Dates: start: 2002
  46. LANTUS [Suspect]
     Active Substance: INSULIN GLARGINE
     Route: 065
  47. METHYLSULFONYLMETHANE [Suspect]
     Active Substance: DIMETHYL SULFONE
     Route: 065
  48. BERBERINE [Concomitant]
     Active Substance: BERBERINE
     Indication: DIABETES MELLITUS
  49. LUTEIN [Concomitant]
     Active Substance: LUTEIN
     Dates: start: 2014
  50. FISH OIL [Concomitant]
     Active Substance: FISH OIL
     Indication: INFLAMMATION
     Dates: start: 2014
  51. METFORMIN [Suspect]
     Active Substance: METFORMIN HYDROCHLORIDE
     Route: 065
  52. RANITIDINE [Suspect]
     Active Substance: RANITIDINE\RANITIDINE HYDROCHLORIDE
     Route: 065
  53. NEXIUM [Suspect]
     Active Substance: ESOMEPRAZOLE MAGNESIUM
     Indication: HIATUS HERNIA
     Route: 048
     Dates: start: 20141205
  54. ESTROGENS CONJUGATED [Suspect]
     Active Substance: ESTROGENS, CONJUGATED
     Route: 065
  55. FLAXSEED [Concomitant]
     Active Substance: FLAX SEED
  56. BROMELAIN-POS [Concomitant]
     Active Substance: BROMELAINS
     Indication: HYPERSENSITIVITY
     Dates: start: 2012
  57. HYDROCHLOROTHIAZIDE. [Concomitant]
     Active Substance: HYDROCHLOROTHIAZIDE
  58. CELECOXIB. [Suspect]
     Active Substance: CELECOXIB
     Route: 048
  59. NEXIUM [Suspect]
     Active Substance: ESOMEPRAZOLE MAGNESIUM
     Indication: HIATUS HERNIA
     Route: 048
     Dates: start: 2004, end: 20141205
  60. LEVAQUIN [Suspect]
     Active Substance: LEVOFLOXACIN
     Route: 065
  61. ACIPHEX [Suspect]
     Active Substance: RABEPRAZOLE SODIUM
     Route: 065
  62. EXCEDRIN [Concomitant]
     Active Substance: ACETAMINOPHEN\ASPIRIN\CAFFEINE
  63. ACETAMINOPHEN. [Concomitant]
     Active Substance: ACETAMINOPHEN
  64. TURMERIC [Concomitant]
     Active Substance: TURMERIC
     Dates: start: 2009

REACTIONS (18)
  - Barrett^s oesophagus [Unknown]
  - Micturition urgency [Unknown]
  - Femur fracture [Unknown]
  - Bladder disorder [Recovered/Resolved]
  - Fatigue [Unknown]
  - Blood magnesium decreased [Unknown]
  - Abdominal discomfort [Recovered/Resolved]
  - Sleep disorder due to a general medical condition [Unknown]
  - Drug ineffective [Unknown]
  - Arthritis [Unknown]
  - Rash macular [Unknown]
  - Intentional product misuse [Unknown]
  - Condition aggravated [Unknown]
  - Diabetes mellitus [Unknown]
  - Cystitis [Unknown]
  - Blood zinc decreased [Unknown]
  - Drug hypersensitivity [Unknown]
  - Product physical issue [Unknown]

NARRATIVE: CASE EVENT DATE: 2004
